FAERS Safety Report 4953876-3 (Version None)
Quarter: 2006Q1

REPORT INFORMATION
  Report Type: 
  Country: None (occurrence: None)
  Receive Date: 20060324
  Receipt Date: 20060324
  Transmission Date: 20060701
  Serious: Yes (Hospitalization)
  Sender: FDA-Public Use
  Company Number: None

PATIENT
  Age: 74 Year
  Sex: Male
  Weight: 73 kg

DRUGS (15)
  1. LISINOPRIL [Suspect]
     Indication: HYPERTENSION
     Dosage: 5MG QD
     Dates: start: 20050811, end: 20050901
  2. GUAIFENESIN [Concomitant]
  3. OLOPATADINE [Concomitant]
  4. NAPROXEN [Concomitant]
  5. TYLENOL (CAPLET) [Concomitant]
  6. NITROGLYCERIN [Concomitant]
  7. TOLTERODINE [Concomitant]
  8. DOCUSATE [Concomitant]
  9. NEXIUM [Concomitant]
  10. TRAZODONE HCL [Concomitant]
  11. LOXAPINE [Concomitant]
  12. SENNOSIDES [Concomitant]
  13. ASPIRIN [Concomitant]
  14. ZOLOFT [Concomitant]
  15. M.V.I. [Concomitant]

REACTIONS (2)
  - ANGIONEUROTIC OEDEMA [None]
  - DYSPHAGIA [None]
